FAERS Safety Report 19671877 (Version 2)
Quarter: 2021Q3

REPORT INFORMATION
  Report Type: Spontaneous
  Country: IN (occurrence: IN)
  Receive Date: 20210806
  Receipt Date: 20210817
  Transmission Date: 20211014
  Serious: Yes (Other)
  Sender: FDA-Public Use
  Company Number: NVSC2021IN176135

PATIENT

DRUGS (20)
  1. MERCAPTOPURINE. [Suspect]
     Active Substance: MERCAPTOPURINE
     Indication: ACUTE MYELOID LEUKAEMIA
     Dosage: 60 MG/M2, QD, DAY 1?28 CONSOLIDATION
     Route: 048
  2. MERCAPTOPURINE. [Suspect]
     Active Substance: MERCAPTOPURINE
     Dosage: 50 MG/M2, QD, DAY 1? 56 INTERIM MAINTENANCE
     Route: 048
  3. CYTOSINE ARABINOSIDE [Suspect]
     Active Substance: CYTARABINE
     Dosage: 75 MG/M2, QD, DAY 2?5, 9?12 RECONSOLIDATION
     Route: 042
  4. METHOTREXATE. [Suspect]
     Active Substance: METHOTREXATE
     Indication: ACUTE MYELOID LEUKAEMIA
     Dosage: AGE ADJUSTED, DAY 2, 9, 16, 23 CONSOLIDATION
     Route: 037
  5. METHOTREXATE. [Suspect]
     Active Substance: METHOTREXATE
     Dosage: 5 G/M2 AGE ADJUSTED, DAY 8, 22, 36, 50 PROTOCOL M
     Route: 037
  6. VINCRISTINE [Suspect]
     Active Substance: VINCRISTINE
     Indication: ACUTE MYELOID LEUKAEMIA
     Dosage: 1.5 MG/M2, DAY 1,8,15, 22 REINDUCTION
     Route: 042
  7. DAUNORUBICIN [Suspect]
     Active Substance: DAUNORUBICIN
     Indication: ACUTE MYELOID LEUKAEMIA
     Dosage: 30 MG/M2, DAY 1,8,15, 22 REINDUCTION
     Route: 042
  8. L?ASPARAGINASE [Suspect]
     Active Substance: ASPARAGINASE
     Indication: ACUTE MYELOID LEUKAEMIA
     Dosage: 10,000 I.U/M2, DAY 2,5,8,11 REINDUCTION
     Route: 030
  9. PREDNISOLONE. [Suspect]
     Active Substance: PREDNISOLONE
     Indication: ACUTE MYELOID LEUKAEMIA
     Dosage: 60 MG/M2, QD, DAY 1?7 MAINTENANCE
     Route: 048
  10. CYCLOPHOSPHAMIDE. [Suspect]
     Active Substance: CYCLOPHOSPHAMIDE
     Indication: ACUTE MYELOID LEUKAEMIA
     Dosage: 1G/M2, DAY 1,30
     Route: 042
  11. MERCAPTOPURINE. [Suspect]
     Active Substance: MERCAPTOPURINE
     Dosage: 50 MG/M2, QD, DAY 1? 28 MAINTENANCCE
     Route: 048
  12. CYTOSINE ARABINOSIDE [Suspect]
     Active Substance: CYTARABINE
     Indication: ACUTE MYELOID LEUKAEMIA
     Dosage: 75 MG/M2, QD, DAY 2?5, 9?12, 16?19, 23?26 CONSOLIDATION
     Route: 042
  13. CYCLOPHOSPHAMIDE. [Suspect]
     Active Substance: CYCLOPHOSPHAMIDE
     Dosage: 1G/M2, DAY 1
     Route: 042
  14. METHOTREXATE. [Suspect]
     Active Substance: METHOTREXATE
     Dosage: 20 MG/M2, QW, DAY 1? 28 MAINTENANCE
     Route: 048
  15. DEXAMETHASONE. [Suspect]
     Active Substance: DEXAMETHASONE
     Indication: ACUTE MYELOID LEUKAEMIA
     Dosage: 10 MG/M2, QD, DAY 1?21 AND TAPER REINDUCTION
     Route: 048
  16. MERCAPTOPURINE. [Suspect]
     Active Substance: MERCAPTOPURINE
     Dosage: 25 MG/M2, QD, DAY 1? 56 PROTOCOL M
     Route: 048
  17. METHOTREXATE. [Suspect]
     Active Substance: METHOTREXATE
     Dosage: AGE ADJUSTED, DAY 2, 9 RECONSOLIDATION
     Route: 037
  18. IMATINIB. [Suspect]
     Active Substance: IMATINIB MESYLATE
     Indication: ACUTE MYELOID LEUKAEMIA
     Dosage: UNK
     Route: 065
  19. METHOTREXATE. [Suspect]
     Active Substance: METHOTREXATE
     Dosage: 20 MG/M2, QW, DAY 1? 56 INTERIM MAINTENANCE
     Route: 048
  20. VINCRISTINE [Suspect]
     Active Substance: VINCRISTINE
     Dosage: 1.5 MG/M2, DAY 1
     Route: 042

REACTIONS (2)
  - Product use in unapproved indication [Unknown]
  - Acute myeloid leukaemia recurrent [Unknown]
